FAERS Safety Report 9654707 (Version 1)
Quarter: 2013Q4

REPORT INFORMATION
  Report Type: Spontaneous
  Country: NL (occurrence: NL)
  Receive Date: 20131029
  Receipt Date: 20131029
  Transmission Date: 20140711
  Serious: Yes (Disabling)
  Sender: FDA-Public Use
  Company Number: NL-BRISTOL-MYERS SQUIBB COMPANY-19613728

PATIENT
  Age: 58 Year
  Sex: Male
  Weight: 80 kg

DRUGS (3)
  1. KENACORT [Suspect]
     Indication: SACROILIITIS
     Dosage: 21-AUG-2013
  2. DICLOFENAC POTASSIUM TABS 50 MG [Concomitant]
     Dates: start: 20130823
  3. PARACETAMOL TABS 500 MG [Concomitant]
     Dosage: 1 DF: 2 TABS
     Dates: start: 20130821

REACTIONS (3)
  - Nerve injury [Recovering/Resolving]
  - Neuralgia [Recovering/Resolving]
  - Paralysis [Unknown]
